FAERS Safety Report 21783825 (Version 1)
Quarter: 2022Q4

REPORT INFORMATION
  Report Type: Spontaneous
  Country: ES (occurrence: ES)
  Receive Date: 20221227
  Receipt Date: 20221227
  Transmission Date: 20230112
  Serious: Yes (Life-Threatening)
  Sender: FDA-Public Use
  Company Number: None

PATIENT
  Age: 81 Year
  Sex: Female

DRUGS (16)
  1. ATROVENT [Suspect]
     Active Substance: IPRATROPIUM BROMIDE
     Indication: Tracheobronchitis
     Dosage: 1.0 AMP A-DECOCE?ROUTE- OTHER
     Dates: start: 20221215
  2. ACENAM 1250 mg COMPRIMIDOS EFERVESCENTES, 40 comprimidos [Concomitant]
     Indication: Spinal osteoarthritis
     Route: 048
     Dates: start: 20220803
  3. AMIODARONA AUROVITAS 200 MG COMPRIMIDOS EFG, 30 comprimidos [Concomitant]
     Indication: Atrial fibrillation
     Dosage: 200.0 MG DE
     Route: 048
     Dates: start: 20180526
  4. TOBRADEX 1 MG/ML + 3 MG/ML COLIRIO EN SUSPENSI?N , 1 frasco de 5 ml [Concomitant]
     Indication: Conjunctivitis
     Dosage: 1.0 GTS
     Route: 047
     Dates: start: 20221215
  5. BILAXTEN 20 mg COMPRIMIDOS, 20 comprimidos [Concomitant]
     Indication: Product used for unknown indication
     Route: 048
     Dates: start: 20161028
  6. LUMIGAN 0,1 mg/ml COLIRIO EN SOLUCION, 1 frasco de 3 ml [Concomitant]
     Indication: Glaucoma
     Dosage: 2.0 GTS ?NOC
     Route: 047
     Dates: start: 20160128
  7. FORMODUAL 200 MICROGRAMOS/6 MICROGRAMOS POR PULSACION SOLUCION PARA IN [Concomitant]
     Indication: Product used for unknown indication
     Dosage: 2.0 PUFF?ROUTE-OTHER
     Dates: start: 20201102
  8. CALCIFEDIOL [Concomitant]
     Active Substance: CALCIFEDIOL
     Indication: Osteoarthritis
     Route: 048
     Dates: start: 20190110
  9. PANTOPRAZOL CINFA 40 mg COMPRIMIDOS GASTRORRESISTENTES EFG,56 comprimi [Concomitant]
     Indication: Product used for unknown indication
     Dosage: 40.0 MG DE
     Route: 048
     Dates: start: 20221215
  10. PARACETAMOL CINFA 1 g COMPRIMIDOS EFG , 40 comprimidos [Concomitant]
     Indication: Spinal osteoarthritis
     Route: 048
     Dates: start: 20180828
  11. DILTIWAS RETARD 120 MG C?PSULAS DURAS DE LIBERACI?N PROLONGADA , 40 c? [Concomitant]
     Indication: Atrial fibrillation
     Dosage: 120.0 MG DECE
     Route: 048
     Dates: start: 20150724
  12. ESOMEPRAZOL RATIOPHARM 20 mg CAPSULAS DURAS GASTRORRESISTENTES EFG , 2 [Concomitant]
     Indication: Diaphragmatic hernia
     Dosage: 20.0 MG A-DE
     Route: 048
     Dates: start: 20151215
  13. SPIRIVA RESPIMAT 2,5 microgramos SOLUCION PARA INHALACION, 1 inhalador [Concomitant]
     Indication: Bronchitis
     Dosage: 2.0 PUFF?ROUTE-?OTHER
     Dates: start: 20221215
  14. METFORMINA KERN PHARMA 850 MG COMPRIMIDOS RECUBIERTOS CON PELICULA EFG [Concomitant]
     Indication: Diabetes mellitus
     Dosage: 425.0 MG CE
     Route: 048
     Dates: start: 20180525
  15. DIAZEPAM CINFA 5 MG COMPRIMIDOS EFG, 40 comprimidos [Concomitant]
     Indication: Insomnia
     Dosage: NOC
     Route: 048
     Dates: start: 20130423
  16. XARELTO [Concomitant]
     Active Substance: RIVAROXABAN
     Indication: Atrial fibrillation
     Dosage: 20.0 MG DE
     Route: 048
     Dates: start: 20220122

REACTIONS (3)
  - Cough [Recovering/Resolving]
  - Conjunctivitis [Recovering/Resolving]
  - Diarrhoea [Recovering/Resolving]

NARRATIVE: CASE EVENT DATE: 20221215
